FAERS Safety Report 24397529 (Version 1)
Quarter: 2024Q4

REPORT INFORMATION
  Report Type: Spontaneous
  Country: PL (occurrence: PL)
  Receive Date: 20241004
  Receipt Date: 20241004
  Transmission Date: 20250114
  Serious: Yes (Hospitalization, Other)
  Sender: JOHNSON AND JOHNSON
  Company Number: PL-MLMSERVICE-20240925-PI199169-00174-2

PATIENT
  Age: 35 Year
  Sex: Female

DRUGS (8)
  1. HALDOL [Suspect]
     Active Substance: HALOPERIDOL
     Indication: Psychotic symptom
     Route: 065
  2. RISPERDAL [Suspect]
     Active Substance: RISPERIDONE
     Indication: Psychotic symptom
     Dosage: UP TO 4MG/D
     Route: 065
  3. LAMOTRIGINE [Concomitant]
     Active Substance: LAMOTRIGINE
     Indication: Epilepsy
     Dosage: ESCALATED
  4. LAMOTRIGINE [Concomitant]
     Active Substance: LAMOTRIGINE
  5. LACOSAMIDE [Concomitant]
     Active Substance: LACOSAMIDE
     Indication: Epilepsy
     Dosage: ESCALATED
  6. LACOSAMIDE [Concomitant]
     Active Substance: LACOSAMIDE
  7. VALPROIC ACID [Concomitant]
     Active Substance: VALPROIC ACID
     Indication: Epilepsy
     Dosage: ESCALATED
  8. VALPROIC ACID [Concomitant]
     Active Substance: VALPROIC ACID
     Dosage: ESCALATED

REACTIONS (1)
  - Seizure [Recovering/Resolving]
